FAERS Safety Report 13296425 (Version 1)
Quarter: 2017Q1

REPORT INFORMATION
  Report Type: Report from Study
  Country: US (occurrence: US)
  Receive Date: 20170305
  Receipt Date: 20170305
  Transmission Date: 20170428
  Serious: Yes (Hospitalization)
  Sender: FDA-Public Use
  Company Number: PHHO2017US001943

PATIENT
  Age: 53 Year
  Sex: Male
  Weight: 124 kg

DRUGS (8)
  1. BLINDED PACLITAXEL [Suspect]
     Active Substance: PACLITAXEL
     Dosage: 900 MG (TOTAL DOSE)
     Route: 048
     Dates: start: 20160607
  2. BLINDED PAZOPANIB [Suspect]
     Active Substance: PAZOPANIB
     Dosage: 900 MG (TOTAL DOSE)
     Route: 048
     Dates: start: 20160607
  3. BLINDED PACLITAXEL [Suspect]
     Active Substance: PACLITAXEL
     Indication: ANAPLASTIC THYROID CANCER
     Dosage: 1500 MG (TOTAL DOSE)
     Route: 048
     Dates: start: 20160509, end: 20160513
  4. BLINDED PAZOPANIB [Suspect]
     Active Substance: PAZOPANIB
     Indication: ANAPLASTIC THYROID CANCER
     Dosage: 1500 MG (TOTAL DOSE)
     Route: 048
     Dates: start: 20160509, end: 20160513
  5. COMPARATOR PACLITAXEL [Suspect]
     Active Substance: PACLITAXEL
     Dosage: 96 MG (TOTAL DOSE)
     Route: 042
     Dates: start: 20160607
  6. BLINDED NO TREATMENT RECEIVED [Suspect]
     Active Substance: INVESTIGATIONAL PRODUCT
     Indication: ANAPLASTIC THYROID CANCER
     Dosage: 1500 MG (TOTAL DOSE)
     Route: 048
     Dates: start: 20160509, end: 20160513
  7. BLINDED NO TREATMENT RECEIVED [Suspect]
     Active Substance: INVESTIGATIONAL PRODUCT
     Dosage: 900 MG (TOTAL DOSE)
     Route: 048
     Dates: start: 20160607
  8. COMPARATOR PACLITAXEL [Suspect]
     Active Substance: PACLITAXEL
     Indication: ANAPLASTIC THYROID CANCER
     Dosage: 132 MG (TOTAL DOSE)
     Route: 042
     Dates: start: 20160426

REACTIONS (8)
  - Pyrexia [Recovered/Resolved]
  - Embolism [Recovered/Resolved]
  - Dysphagia [Recovered/Resolved]
  - Pyrexia [Recovered/Resolved]
  - Vomiting [Unknown]
  - Stomatitis [Recovered/Resolved]
  - Thrombophlebitis septic [Recovered/Resolved]
  - Nausea [Unknown]

NARRATIVE: CASE EVENT DATE: 20160511
